FAERS Safety Report 8763064 (Version 3)
Quarter: 2012Q4

REPORT INFORMATION
  Report Type: Spontaneous
  Country: DK (occurrence: None)
  Receive Date: 20120827
  Receipt Date: 20120920
  Transmission Date: 20130627
  Serious: Yes (Other)
  Sender: FDA-Public Use
  Company Number: 1383253

PATIENT
  Age: 69 Year
  Sex: Male

DRUGS (8)
  1. IRINOTECAN HYDROCHLORIDE [Suspect]
     Indication: COLORECTAL CANCER
     Dosage: (14 day)
     Route: 042
     Dates: start: 20120223, end: 20120412
  2. FLUOROURACIL [Suspect]
     Indication: COLORECTAL CANCER
     Dosage: (14 day)
     Dates: start: 20120223, end: 20120412
  3. BEVACIZUMAB [Suspect]
     Indication: COLORECTAL CANCER
     Dosage: (14 day)
     Route: 042
     Dates: end: 20120412
  4. ENALAPRIL [Concomitant]
  5. PREDNISOLONE [Concomitant]
  6. ONDANSETRON [Concomitant]
  7. ATROPINE [Concomitant]
  8. VITAMIN D3 [Concomitant]

REACTIONS (2)
  - Fistula [None]
  - Intestinal fistula [None]
